FAERS Safety Report 8813629 (Version 3)
Quarter: 2013Q2

REPORT INFORMATION
  Report Type: Spontaneous
  Country: US (occurrence: US)
  Receive Date: 20120927
  Receipt Date: 20130513
  Transmission Date: 20140414
  Serious: No
  Sender: FDA-Public Use
  Company Number: US-009507513-1209USA010353

PATIENT
  Age: 67 Year
  Sex: Female

DRUGS (5)
  1. ASMANEX TWISTHALER [Suspect]
     Indication: ASTHMA
     Dosage: UNK
     Route: 048
  2. ASMANEX TWISTHALER [Suspect]
     Dosage: 220 MCG/ONE PUFF, ONCE DAILY
     Route: 048
     Dates: start: 201304
  3. NASONEX [Concomitant]
     Route: 045
  4. CHOLECALCIFEROL [Concomitant]
  5. CLARITIN [Concomitant]

REACTIONS (3)
  - Dysphonia [Unknown]
  - Dizziness [Recovered/Resolved]
  - Blood glucose increased [Recovered/Resolved]
